FAERS Safety Report 15813835 (Version 2)
Quarter: 2019Q1

REPORT INFORMATION
  Report Type: Spontaneous
  Country: JP (occurrence: JP)
  Receive Date: 20190111
  Receipt Date: 20190125
  Transmission Date: 20190417
  Serious: Yes (Death)
  Sender: FDA-Public Use
  Company Number: JP-ELI_LILLY_AND_COMPANY-JP201901005147

PATIENT
  Age: 71 Year
  Sex: Male

DRUGS (4)
  1. ERBITUX [Suspect]
     Active Substance: CETUXIMAB
     Indication: BONE CANCER
     Dosage: 400 MG/M2, SINGLE
     Route: 041
  2. ERBITUX [Suspect]
     Active Substance: CETUXIMAB
     Indication: BONE CANCER
     Dosage: 250 MG/M2, WEEKLY (1/W)
     Route: 041
  3. PACLITAXEL. [Suspect]
     Active Substance: PACLITAXEL
     Indication: BONE CANCER
     Dosage: 100 MG/M2, WEEKLY (1/W)
     Route: 065
  4. PACLITAXEL. [Suspect]
     Active Substance: PACLITAXEL
     Indication: BONE CANCER

REACTIONS (2)
  - Respiratory failure [Fatal]
  - Off label use [Unknown]
